FAERS Safety Report 21302027 (Version 1)
Quarter: 2022Q3

REPORT INFORMATION
  Report Type: Spontaneous
  Country: JP (occurrence: JP)
  Receive Date: 20220907
  Receipt Date: 20220907
  Transmission Date: 20221027
  Serious: Yes (Hospitalization)
  Sender: FDA-Public Use
  Company Number: JP-009507513-1908JPN002859

PATIENT
  Age: 16 Year
  Sex: Female
  Weight: 44.8 kg

DRUGS (1)
  1. DESOGESTREL\ETHINYL ESTRADIOL [Suspect]
     Active Substance: DESOGESTREL\ETHINYL ESTRADIOL
     Indication: Dysmenorrhoea
     Dosage: SMALL-DOSE
     Route: 048

REACTIONS (2)
  - Nerve compression [Recovered/Resolved]
  - Product use in unapproved indication [Unknown]
